FAERS Safety Report 6572112-8 (Version None)
Quarter: 2010Q1

REPORT INFORMATION
  Report Type: 
  Country: None (occurrence: None)
  Receive Date: 20100205
  Receipt Date: 20100125
  Transmission Date: 20100710
  Serious: Yes (Other)
  Sender: FDA-Public Use
  Company Number: PHHY2009JP24411

PATIENT
  Sex: Female
  Weight: 42 kg

DRUGS (9)
  1. NEORAL [Suspect]
     Indication: ALLOGENIC BONE MARROW TRANSPLANTATION THERAPY
     Dosage: 40 MG, BID
     Route: 048
     Dates: start: 20080320, end: 20081001
  2. NEORAL [Suspect]
     Dosage: 3 MG/KG/DAY
  3. PREDONINE [Suspect]
     Indication: ALLOGENIC BONE MARROW TRANSPLANTATION THERAPY
     Dosage: 20 MG, QD
     Route: 048
     Dates: start: 20080723, end: 20081119
  4. METHOTREXATE [Concomitant]
     Indication: ALLOGENIC BONE MARROW TRANSPLANTATION THERAPY
     Dosage: 15 MG/M^2 ON DAY 1
     Dates: start: 20080301
  5. METHOTREXATE [Concomitant]
     Dosage: 10 MG/M^2 ON DAY 3 AND DAY 6
  6. NEUPOGEN [Concomitant]
  7. BUSULFAN [Concomitant]
     Indication: ALLOGENIC BONE MARROW TRANSPLANTATION THERAPY
     Dosage: 0.8 MG/M^2
  8. CYCLOPHOSPHAMIDE [Concomitant]
     Indication: ALLOGENIC BONE MARROW TRANSPLANTATION THERAPY
     Dosage: 60 MG/KG/DAY
  9. FLUCONAZOLE [Concomitant]
     Indication: INFECTION PROPHYLAXIS
     Dosage: 200 MG
     Route: 048
     Dates: start: 20080305, end: 20081001

REACTIONS (12)
  - ACUTE GRAFT VERSUS HOST DISEASE IN SKIN [None]
  - BONE MARROW FAILURE [None]
  - CHRONIC GRAFT VERSUS HOST DISEASE [None]
  - HEADACHE [None]
  - INFLAMMATION [None]
  - INTRACRANIAL VENOUS SINUS THROMBOSIS [None]
  - NAUSEA [None]
  - PIGMENTATION DISORDER [None]
  - PLATELET COUNT DECREASED [None]
  - RASH MACULO-PAPULAR [None]
  - STOMATITIS [None]
  - VOMITING [None]
